APPROVED DRUG PRODUCT: RIFAMATE
Active Ingredient: ISONIAZID; RIFAMPIN
Strength: 150MG;300MG
Dosage Form/Route: CAPSULE;ORAL
Application: A061884 | Product #001
Applicant: SANOFI AVENTIS US LLC
Approved: Approved Prior to Jan 1, 1982 | RLD: No | RS: No | Type: DISCN